FAERS Safety Report 5219625-9 (Version None)
Quarter: 2007Q1

REPORT INFORMATION
  Report Type: 
  Country: None (occurrence: None)
  Receive Date: 20070125
  Receipt Date: 20061012
  Transmission Date: 20070707
  Serious: Yes (Other)
  Sender: FDA-Public Use
  Company Number: US-PFIZER INC-2006027712

PATIENT
  Sex: Female
  Weight: 78.9 kg

DRUGS (5)
  1. BEXTRA [Suspect]
  2. FERROUS SULFATE TAB [Concomitant]
  3. PROVERA [Concomitant]
  4. FUROSEMIDE [Concomitant]
  5. ELAVIL [Concomitant]

REACTIONS (2)
  - PRURITUS GENERALISED [None]
  - RASH [None]
